FAERS Safety Report 8314722-3 (Version None)
Quarter: 2012Q2

REPORT INFORMATION
  Report Type: 
  Country: None (occurrence: None)
  Receive Date: 20120426
  Receipt Date: 20120418
  Transmission Date: 20120825
  Serious: Yes (Hospitalization)
  Sender: FDA-Public Use
  Company Number: US-BAYER-2012-006577

PATIENT
  Age: 27 Year
  Sex: Female
  Weight: 67.574 kg

DRUGS (3)
  1. YAZ [Suspect]
     Dosage: UNK
     Dates: start: 20060101, end: 20100120
  2. MORPHINE [Concomitant]
  3. NIZATIDINE [Concomitant]
     Dosage: 150 MG CAPSULE
     Dates: start: 20090924

REACTIONS (3)
  - GALLBLADDER DISORDER [None]
  - ABDOMINAL PAIN UPPER [None]
  - CHOLECYSTITIS ACUTE [None]
